FAERS Safety Report 6295963-6 (Version None)
Quarter: 2009Q3

REPORT INFORMATION
  Report Type: 
  Country: None (occurrence: None)
  Receive Date: 20090731
  Receipt Date: 20090722
  Transmission Date: 20100115
  Serious: Yes (Other)
  Sender: FDA-Public Use
  Company Number: 2009AL004792

PATIENT
  Age: 82 Year
  Sex: Female

DRUGS (1)
  1. DIGOXIN [Suspect]
     Dosage: 0.25MG, DAILY, PO
     Route: 048

REACTIONS (6)
  - ABDOMINAL DISCOMFORT [None]
  - BLOOD PRESSURE DECREASED [None]
  - CARDIOACTIVE DRUG LEVEL INCREASED [None]
  - DECREASED APPETITE [None]
  - HEART RATE DECREASED [None]
  - VOMITING [None]
